FAERS Safety Report 20404889 (Version 6)
Quarter: 2023Q4

REPORT INFORMATION
  Report Type: Report from Study
  Country: TH (occurrence: TH)
  Receive Date: 20220131
  Receipt Date: 20231207
  Transmission Date: 20240109
  Serious: Yes (Other)
  Sender: FDA-Public Use
  Company Number: TH-NOVARTISPH-NVSC2021TH103668

PATIENT
  Age: 72 Year
  Sex: Female

DRUGS (7)
  1. KISQALI [Suspect]
     Active Substance: RIBOCICLIB
     Indication: Breast cancer metastatic
     Dosage: UNK (TAKEN FOR 3 WEEKS THEN SKIPPED FOR 2 WEEKS)
     Route: 048
  2. KISQALI [Suspect]
     Active Substance: RIBOCICLIB
     Dosage: 2 DOSAGE FORM, QD (AFTER BREAKFAST TAKING 21 DAYS, STOPPING 2 WEEKS)
     Route: 048
     Dates: start: 20220615
  3. KISQALI [Suspect]
     Active Substance: RIBOCICLIB
     Dosage: 200 MG (STOP DATE: AUG 2023 OR SEP 2023)
     Route: 048
  4. KISQALI [Suspect]
     Active Substance: RIBOCICLIB
     Dosage: 200 MG
     Route: 048
     Dates: end: 20231113
  5. KISQALI [Suspect]
     Active Substance: RIBOCICLIB
     Dosage: 200 MG, QD (2 TABLETS) (AFTER BREAKFAST - TAKING 3 WEEKS, SKIPPING 2 WEEKS)
     Route: 048
     Dates: start: 20231129
  6. FEMARA [Suspect]
     Active Substance: LETROZOLE
     Indication: Product used for unknown indication
     Dosage: 1 DOSAGE FORM, QD (AFTER BREAKFAST)
     Route: 065
  7. CALCIUM CARBONATE [Concomitant]
     Active Substance: CALCIUM CARBONATE
     Indication: Product used for unknown indication
     Dosage: 1 DOSAGE FORM, ONCE DAILY AFTER DINNER, AMOUNT 35 TABLETS
     Route: 065

REACTIONS (8)
  - Dementia Alzheimer^s type [Unknown]
  - Weight decreased [Unknown]
  - White blood cell count abnormal [Unknown]
  - Underdose [Unknown]
  - White blood cell count decreased [Unknown]
  - Full blood count abnormal [Recovered/Resolved]
  - Decreased appetite [Recovering/Resolving]
  - Influenza [Unknown]

NARRATIVE: CASE EVENT DATE: 20231113
